FAERS Safety Report 18013681 (Version 1)
Quarter: 2020Q3

REPORT INFORMATION
  Report Type: Report from Study
  Country: RU (occurrence: RU)
  Receive Date: 20200713
  Receipt Date: 20200713
  Transmission Date: 20201103
  Serious: Yes (Other)
  Sender: FDA-Public Use
  Company Number: RU-ASTELLAS-2020US023177

PATIENT

DRUGS (7)
  1. FLUDARABINE [Concomitant]
     Active Substance: FLUDARABINE PHOSPHATE
     Indication: ALLOGENIC STEM CELL TRANSPLANTATION
     Dosage: 180 MG/M2, UNKNOWN FREQ. (OVER 6 DAYS)
     Route: 065
  2. CYCLOPHOSPHAMIDE. [Concomitant]
     Active Substance: CYCLOPHOSPHAMIDE
     Indication: PROPHYLAXIS AGAINST GRAFT VERSUS HOST DISEASE
     Dosage: 50 MG/KG, UNKNOWN FREQ. (ON DAYS +3 AND +4)
     Route: 065
  3. BUSULFAN. [Concomitant]
     Active Substance: BUSULFAN
     Indication: ALLOGENIC STEM CELL TRANSPLANTATION
     Dosage: 10 MG/KG, UNKNOWN FREQ. (OVER 3 DAYS)
     Route: 048
  4. TACROLIMUS. [Suspect]
     Active Substance: TACROLIMUS
     Indication: PROPHYLAXIS AGAINST GRAFT VERSUS HOST DISEASE
     Dosage: 0.03 MG/KG, ONCE DAILY (STARTING DAY +5 WITH TARGET CONCENTRATION 5?15 NG/ML)
     Route: 065
  5. FLUCONAZOLE. [Concomitant]
     Active Substance: FLUCONAZOLE
     Indication: ANTIFUNGAL PROPHYLAXIS
     Dosage: UNK UNK, UNKNOWN FREQ. (STARTING ON DAY 0 AND CONTINUED UNTIL ENGRAFTMENT)
     Route: 065
  6. MYCOPHENOLATE MOFETIL. [Concomitant]
     Active Substance: MYCOPHENOLATE MOFETIL
     Indication: PROPHYLAXIS AGAINST GRAFT VERSUS HOST DISEASE
     Dosage: 30 MG/KG, ONCE DAILY (STARTED ON DAY +5 AND CONTINUED UNTIL DAY +35)
     Route: 065
  7. MESNA. [Concomitant]
     Active Substance: MESNA
     Indication: PROPHYLAXIS AGAINST GRAFT VERSUS HOST DISEASE
     Dosage: 50 MG/KG, UNKNOWN FREQ. (ADMINISTERED AS 24?HOUR INFUSION ON THE DAYS +3 AND +4)
     Route: 042

REACTIONS (1)
  - Thrombotic microangiopathy [Unknown]
